FAERS Safety Report 26095947 (Version 1)
Quarter: 2025Q4

REPORT INFORMATION
  Report Type: Spontaneous
  Country: NP (occurrence: NP)
  Receive Date: 20251127
  Receipt Date: 20251127
  Transmission Date: 20260119
  Serious: Yes (Hospitalization, Other)
  Sender: SOMERSET THERAPEUTICS, LLC
  Company Number: NP-Somerset-000013

PATIENT
  Age: 24 Year
  Sex: Male
  Weight: 68 kg

DRUGS (4)
  1. ACARBOSE [Suspect]
     Active Substance: ACARBOSE
     Indication: Product used for unknown indication
     Route: 048
  2. DEXTROSE\SODIUM CHLORIDE [Concomitant]
     Active Substance: DEXTROSE\SODIUM CHLORIDE
     Indication: Blood glucose decreased
     Dosage: TWO BOLUSES OF 50% DEXTROSE, 50ML IV EACH (TOTALING 100ML OR 50 G OF GLUCOSE)
  3. SODIUM CHLORIDE [Concomitant]
     Active Substance: SODIUM CHLORIDE
     Indication: Dehydration
     Dosage: 1L IV OVER 30MIN
  4. Esofest [Concomitant]
     Indication: Gastrointestinal disorder
     Route: 065

REACTIONS (6)
  - Intentional overdose [Unknown]
  - Renal impairment [Unknown]
  - Hypoglycaemia [Recovered/Resolved]
  - Pyelocaliectasis [Unknown]
  - Gastrointestinal disorder [Unknown]
  - White blood cell count increased [Unknown]
